FAERS Safety Report 8613401-2 (Version None)
Quarter: 2012Q3

REPORT INFORMATION
  Report Type: 
  Country: None (occurrence: None)
  Receive Date: 20120822
  Receipt Date: 20111008
  Transmission Date: 20120928
  Serious: Yes (Other)
  Sender: FDA-Public Use
  Company Number: PHEH2011US013195

PATIENT
  Sex: Female

DRUGS (7)
  1. LOVAZA [Concomitant]
  2. ASCORBIC ACID [Concomitant]
  3. PROBIOTICS [Concomitant]
  4. FISH OIL [Concomitant]
  5. CYMBALTA [Concomitant]
  6. EXFORGE HCT [Suspect]
     Dosage: 1 DF, QD
     Dates: start: 20090622
  7. VITAMIN D [Concomitant]

REACTIONS (3)
  - SPEECH DISORDER [None]
  - PARALYSIS [None]
  - ISCHAEMIC STROKE [None]
